FAERS Safety Report 8520880-8 (Version None)
Quarter: 2012Q3

REPORT INFORMATION
  Report Type: 
  Country: None (occurrence: None)
  Receive Date: 20120719
  Receipt Date: 20120710
  Transmission Date: 20120928
  Serious: Yes (Other)
  Sender: FDA-Public Use
  Company Number: FR-JNJFOC-20120706169

PATIENT

DRUGS (2)
  1. INFLIXIMAB, RECOMBINANT [Suspect]
     Indication: AUTOIMMUNE DISORDER
     Route: 042
  2. INFLIXIMAB, RECOMBINANT [Suspect]
     Indication: RHEUMATOID ARTHRITIS
     Route: 042

REACTIONS (5)
  - TUBERCULOSIS [None]
  - OPPORTUNISTIC INFECTION [None]
  - NON-HODGKIN'S LYMPHOMA [None]
  - HODGKIN'S DISEASE [None]
  - LEGIONELLA INFECTION [None]
